FAERS Safety Report 4892325-0 (Version None)
Quarter: 2006Q1

REPORT INFORMATION
  Report Type: 
  Country: None (occurrence: None)
  Receive Date: 20060126
  Receipt Date: 20051116
  Transmission Date: 20060701
  Serious: Yes (Other)
  Sender: FDA-Public Use
  Company Number: US-GLAXOSMITHKLINE-A0582551A

PATIENT
  Age: 59 Year
  Sex: Female
  Weight: 50.5 kg

DRUGS (3)
  1. WELLBUTRIN XL [Suspect]
     Indication: DEPRESSION
     Dosage: 300MG PER DAY
     Route: 048
     Dates: start: 20051109, end: 20051116
  2. LIPITOR [Concomitant]
  3. SINGULAIR [Concomitant]

REACTIONS (11)
  - ABNORMAL DREAMS [None]
  - ANGER [None]
  - ANXIETY [None]
  - DEPRESSION [None]
  - FATIGUE [None]
  - HEADACHE [None]
  - HOT FLUSH [None]
  - HYPERHIDROSIS [None]
  - MANIA [None]
  - NAUSEA [None]
  - NIGHTMARE [None]
